FAERS Safety Report 14030930 (Version 7)
Quarter: 2018Q1

REPORT INFORMATION
  Report Type: Spontaneous
  Country: JP (occurrence: JP)
  Receive Date: 20171002
  Receipt Date: 20180313
  Transmission Date: 20180508
  Serious: Yes (Death, Hospitalization, Other)
  Sender: FDA-Public Use
  Company Number: JP-009507513-1708JPN003591J

PATIENT
  Age: 57 Year
  Sex: Male
  Weight: 50 kg

DRUGS (7)
  1. KEYTRUDA [Suspect]
     Active Substance: PEMBROLIZUMAB
     Indication: LUNG ADENOCARCINOMA STAGE IV
     Dosage: 200 MG, Q3W
     Route: 041
     Dates: start: 20170711, end: 20170822
  2. NAIXAN [Suspect]
     Active Substance: NAPROXEN SODIUM
     Dosage: 200 MG, TID
     Route: 048
     Dates: start: 20170725, end: 20170801
  3. TAVEGYL [Concomitant]
     Active Substance: CLEMASTINE FUMARATE
     Indication: RASH
     Dosage: 1 MG, BID
     Route: 048
     Dates: start: 20170711, end: 20170830
  4. REBAMIPIDE [Concomitant]
     Active Substance: REBAMIPIDE
     Indication: PROPHYLAXIS AGAINST GASTROINTESTINAL ULCER
     Dosage: 100 MG, BID
     Route: 048
     Dates: start: 20170711, end: 20170725
  5. ACETAMINOPHEN. [Concomitant]
     Active Substance: ACETAMINOPHEN
     Indication: CANCER PAIN
     Dosage: UNK
     Route: 065
     Dates: start: 20170707
  6. SYMBICORT [Concomitant]
     Active Substance: BUDESONIDE\FORMOTEROL FUMARATE DIHYDRATE
     Indication: ASTHMA
     Dosage: UNK
     Route: 055
     Dates: start: 20170711
  7. NAIXAN [Suspect]
     Active Substance: NAPROXEN SODIUM
     Indication: CANCER PAIN
     Dosage: 200 MG, BID
     Route: 048
     Dates: start: 20170711, end: 20170725

REACTIONS (8)
  - Dysphonia [Unknown]
  - Pneumonia aspiration [Fatal]
  - Pyrexia [Recovered/Resolved]
  - Tracheo-oesophageal fistula [Fatal]
  - Acute kidney injury [Recovering/Resolving]
  - Cancer pain [Unknown]
  - Drug eruption [Recovering/Resolving]
  - Pneumonia bacterial [Recovering/Resolving]

NARRATIVE: CASE EVENT DATE: 20170718
